FAERS Safety Report 9637910 (Version 5)
Quarter: 2014Q1

REPORT INFORMATION
  Report Type: Spontaneous
  Country: US (occurrence: US)
  Receive Date: 20131022
  Receipt Date: 20140317
  Transmission Date: 20141002
  Serious: Yes (Hospitalization, Disabling, Other)
  Sender: FDA-Public Use
  Company Number: US-009507513-0703USA04034

PATIENT
  Sex: Female
  Weight: 54 kg

DRUGS (4)
  1. FOSAMAX [Suspect]
     Indication: OSTEOPOROSIS PROPHYLAXIS
     Dosage: 70 MG, UNK
     Route: 048
     Dates: start: 200102, end: 20060816
  2. FOSAMAX [Suspect]
     Indication: RHEUMATOID ARTHRITIS
  3. ALENDRONATE SODIUM [Suspect]
     Indication: BONE DENSITY DECREASED
     Dosage: UNK
  4. ENBREL [Concomitant]
     Indication: RHEUMATOID ARTHRITIS
     Dosage: UNK
     Dates: start: 200410, end: 201003

REACTIONS (33)
  - Intramedullary rod insertion [Unknown]
  - Intramedullary rod insertion [Unknown]
  - Femur fracture [Unknown]
  - Femur fracture [Unknown]
  - Femur fracture [Recovering/Resolving]
  - Impaired healing [Unknown]
  - Paraesthesia [Not Recovered/Not Resolved]
  - Bone density decreased [Unknown]
  - Foot fracture [Unknown]
  - Foot fracture [Unknown]
  - Bone disorder [Unknown]
  - Foot fracture [Unknown]
  - Foot operation [Unknown]
  - Bunion operation [Unknown]
  - Cyst removal [Unknown]
  - Hypoaesthesia [Unknown]
  - Paraesthesia [Unknown]
  - Pain [Unknown]
  - Bursitis [Unknown]
  - Osteosclerosis [Unknown]
  - Stress [Unknown]
  - Anxiety [Recovering/Resolving]
  - Depression [Recovering/Resolving]
  - Insomnia [Recovering/Resolving]
  - Somnolence [Unknown]
  - Rheumatoid arthritis [Unknown]
  - Drug eruption [Unknown]
  - Hyperkeratosis [Unknown]
  - Onychomycosis [Unknown]
  - Pain in extremity [Unknown]
  - Off label use [Unknown]
  - Drug ineffective [Unknown]
  - Drug ineffective [Unknown]
